FAERS Safety Report 21039601 (Version 1)
Quarter: 2022Q3

REPORT INFORMATION
  Report Type: Spontaneous
  Country: US (occurrence: US)
  Receive Date: 20220704
  Receipt Date: 20220704
  Transmission Date: 20221027
  Serious: No
  Sender: FDA-Public Use
  Company Number: US-JNJFOC-20220660082

PATIENT
  Age: 73 Year

DRUGS (2)
  1. WOMENS ROGAINE UNSCENTED [Suspect]
     Active Substance: MINOXIDIL
     Indication: Alopecia
     Route: 061
  2. Viviscal [Concomitant]
     Indication: Product used for unknown indication
     Route: 065

REACTIONS (2)
  - Trichorrhexis [Unknown]
  - Hair texture abnormal [Unknown]
